FAERS Safety Report 16252512 (Version 2)
Quarter: 2019Q2

REPORT INFORMATION
  Report Type: Report from Study
  Country: US (occurrence: US)
  Receive Date: 20190429
  Receipt Date: 20190513
  Transmission Date: 20190711
  Serious: Yes (Death, Hospitalization)
  Sender: FDA-Public Use
  Company Number: US-ACTELION-A-US2015-117805

PATIENT
  Age: 58 Year
  Sex: Female
  Weight: 38.55 kg

DRUGS (10)
  1. VELETRI [Suspect]
     Active Substance: EPOPROSTENOL
     Indication: PULMONARY ARTERIAL HYPERTENSION
     Dosage: 105.4 NG/KG, PER MIN
     Route: 042
  2. TRACLEER [Suspect]
     Active Substance: BOSENTAN
     Indication: PULMONARY ARTERIAL HYPERTENSION
     Dosage: 250 MG, QD
     Route: 048
     Dates: start: 20100812
  3. IRON [Concomitant]
     Active Substance: IRON
  4. VELETRI [Suspect]
     Active Substance: EPOPROSTENOL
     Dosage: 93.5 NG/KG PER MIN
     Route: 042
     Dates: start: 20160829, end: 20190409
  5. AMBIEN [Concomitant]
     Active Substance: ZOLPIDEM TARTRATE
  6. VELETRI [Suspect]
     Active Substance: EPOPROSTENOL
     Dosage: 87 NG/KG, PER MIN
     Route: 042
     Dates: start: 20110627
  7. TRACLEER [Suspect]
     Active Substance: BOSENTAN
     Dosage: 125 MG, BID
     Route: 048
     Dates: end: 20190409
  8. ASPIRIN. [Concomitant]
     Active Substance: ASPIRIN
  9. REVATIO [Concomitant]
     Active Substance: SILDENAFIL CITRATE
  10. ZOCOR [Concomitant]
     Active Substance: SIMVASTATIN

REACTIONS (17)
  - Myalgia [Not Recovered/Not Resolved]
  - Nausea [Recovered/Resolved]
  - Vomiting [Recovered/Resolved]
  - Hypoxia [Unknown]
  - Pulmonary arterial hypertension [Fatal]
  - Cor pulmonale chronic [Unknown]
  - Right ventricular failure [Fatal]
  - Pain in jaw [Not Recovered/Not Resolved]
  - Palpitations [Not Recovered/Not Resolved]
  - Arthralgia [Not Recovered/Not Resolved]
  - Rash macular [Unknown]
  - Dyspnoea [Not Recovered/Not Resolved]
  - Flushing [Not Recovered/Not Resolved]
  - Diarrhoea [Not Recovered/Not Resolved]
  - Disease progression [Fatal]
  - Musculoskeletal pain [Unknown]
  - Chest pain [Not Recovered/Not Resolved]

NARRATIVE: CASE EVENT DATE: 20190409
